FAERS Safety Report 25497040 (Version 1)
Quarter: 2025Q3

REPORT INFORMATION
  Report Type: Spontaneous
  Country: EU (occurrence: EU)
  Receive Date: 20250701
  Receipt Date: 20250701
  Transmission Date: 20251021
  Serious: Yes (Other)
  Sender: TEVA
  Company Number: None

PATIENT
  Age: 27 Year
  Sex: Female
  Weight: 48 kg

DRUGS (1)
  1. FLUTICASONE [Suspect]
     Active Substance: FLUTICASONE
     Indication: Middle ear inflammation
     Dosage: 1 PUFF PER NOSTRIL ONCE A DAY, FLUTICASONE PROPIONATE 50UG/DO / BRAND NAME NOT SPECIFIED
     Route: 045
     Dates: start: 20250612

REACTIONS (1)
  - Dystonia [Not Recovered/Not Resolved]
